FAERS Safety Report 7429722-5 (Version None)
Quarter: 2011Q2

REPORT INFORMATION
  Report Type: 
  Country: None (occurrence: None)
  Receive Date: 20110421
  Receipt Date: 20110413
  Transmission Date: 20111010
  Serious: Yes (Life-Threatening, Other)
  Sender: FDA-Public Use
  Company Number: JP-BRISTOL-MYERS SQUIBB COMPANY-15675515

PATIENT
  Age: 60 Year
  Sex: Female
  Weight: 44 kg

DRUGS (6)
  1. LOXOPROFEN [Concomitant]
  2. TAXOL [Suspect]
     Indication: OVARIAN CANCER
     Route: 041
     Dates: start: 20110303
  3. MAGMITT [Concomitant]
  4. SELBEX [Concomitant]
  5. PARAPLATIN [Suspect]
     Indication: OVARIAN CANCER
     Route: 041
     Dates: start: 20110303
  6. PELTAZON [Concomitant]

REACTIONS (3)
  - ACUTE RESPIRATORY DISTRESS SYNDROME [None]
  - DISSEMINATED INTRAVASCULAR COAGULATION [None]
  - SYSTEMIC INFLAMMATORY RESPONSE SYNDROME [None]
